FAERS Safety Report 6745760-X (Version None)
Quarter: 2010Q2

REPORT INFORMATION
  Report Type: 
  Country: None (occurrence: None)
  Receive Date: 20100528
  Receipt Date: 20100520
  Transmission Date: 20101027
  Serious: Yes (Other)
  Sender: FDA-Public Use
  Company Number: PHHY2010DZ32642

PATIENT
  Age: 10 Year
  Sex: Male

DRUGS (3)
  1. FORADIL [Suspect]
     Dosage: UNK
     Dates: start: 20100405, end: 20100420
  2. LORATADINE [Concomitant]
  3. BECLOMETHASONE DIPROPIONATE [Concomitant]

REACTIONS (3)
  - HALLUCINATION [None]
  - NIGHTMARE [None]
  - VERTIGO [None]
